FAERS Safety Report 7961635-2 (Version None)
Quarter: 2011Q4

REPORT INFORMATION
  Report Type: 
  Country: None (occurrence: None)
  Receive Date: 20111202
  Receipt Date: 20111202
  Transmission Date: 20120403
  Serious: Yes (Other)
  Sender: FDA-Public Use
  Company Number: None

PATIENT
  Sex: Female

DRUGS (1)
  1. DAPAKOTE 250 MG ABBOTT [Suspect]
     Indication: CONVULSION

REACTIONS (2)
  - CONVULSION [None]
  - CONDITION AGGRAVATED [None]
